FAERS Safety Report 15682182 (Version 3)
Quarter: 2018Q4

REPORT INFORMATION
  Report Type: Report from Study
  Country: CA (occurrence: CA)
  Receive Date: 20181203
  Receipt Date: 20181217
  Transmission Date: 20190205
  Serious: Yes (Death, Other)
  Sender: FDA-Public Use
  Company Number: CA-PFIZER INC-2018488143

PATIENT
  Age: 65 Year
  Sex: Male

DRUGS (17)
  1. POTASSIUM PHOSPHATES [Concomitant]
     Active Substance: POTASSIUM PHOSPHATE, DIBASIC\POTASSIUM PHOSPHATE, MONOBASIC
     Dosage: 9 MMOL, AS NEEDED
     Route: 042
  2. MIDAZOLAM [Concomitant]
     Active Substance: MIDAZOLAM HYDROCHLORIDE
     Dosage: 20 MG/HOUR - CONTINUOUS INFUSION
     Route: 042
  3. LACTULOSE. [Concomitant]
     Active Substance: LACTULOSE
     Dosage: 30 ML, 2X/DAY
  4. RANITIDINE. [Concomitant]
     Active Substance: RANITIDINE
     Dosage: 50 MG, 3X/DAY (Q8H)
     Route: 042
  5. RINGER LACTAT [CALCIUM CHLORIDE;POTASSIUM CHLORIDE;SODIUM LACTATE] [Concomitant]
     Dosage: 20 ML/H
  6. LEVETIRACETAM. [Suspect]
     Active Substance: LEVETIRACETAM
     Indication: STATUS EPILEPTICUS
     Dosage: 1500 MG, 2X/DAY
     Route: 042
     Dates: start: 20181031, end: 20181101
  7. MAGNESIUM SULFATE. [Concomitant]
     Active Substance: MAGNESIUM SULFATE
     Dosage: 2 G, AS NEEDED
     Route: 042
  8. NIMODIPINE. [Concomitant]
     Active Substance: NIMODIPINE
     Dosage: 30 MG, EVERY 2 HOURS (Q2H)
  9. POTASSIUM CHLORIDE. [Concomitant]
     Active Substance: POTASSIUM CHLORIDE
     Dosage: 20 MMOL, AS NEEDED
     Route: 042
  10. SENNOSIDES. [Concomitant]
     Active Substance: SENNOSIDES
     Dosage: 17.2 MG, 1X/DAY (QHS)
  11. LEVOPHED [Concomitant]
     Active Substance: NOREPINEPHRINE BITARTRATE
     Dosage: 1.45 UG/KG/MIN - CONTINUOUS INFUSION
     Route: 042
  12. KEPPRA [Suspect]
     Active Substance: LEVETIRACETAM
     Indication: STATUS EPILEPTICUS
     Dosage: 1500 MG, 2X/DAY
     Route: 048
     Dates: start: 20181029, end: 20181031
  13. CEFTRIAXONE. [Concomitant]
     Active Substance: CEFTRIAXONE
     Dosage: 1 G, DAILY (Q24H)
     Route: 042
  14. PROPOFOL. [Concomitant]
     Active Substance: PROPOFOL
     Dosage: 25 UG/KG/MIN - CONTINUOUS INFUSION
     Route: 042
  15. FLUDROCORTISONE [Concomitant]
     Active Substance: FLUDROCORTISONE
     Dosage: 0.2 MG, 2X/DAY (P12H)
  16. LORAZEPAM. [Concomitant]
     Active Substance: LORAZEPAM
     Dosage: 4 MG, SINGLE
     Route: 042
  17. MILK OF MAGNESIA [Concomitant]
     Active Substance: MAGNESIUM HYDROXIDE
     Dosage: 30 ML, 1X/DAY (QHS)

REACTIONS (2)
  - Death [Fatal]
  - Neutropenia [Not Recovered/Not Resolved]

NARRATIVE: CASE EVENT DATE: 20181101
